FAERS Safety Report 26200852 (Version 1)
Quarter: 2025Q4

REPORT INFORMATION
  Report Type: Spontaneous
  Country: US (occurrence: US)
  Receive Date: 20251226
  Receipt Date: 20251226
  Transmission Date: 20260119
  Serious: No
  Sender: INNOGENIX, LLC
  Company Number: US-Innogenix, LLC-2191340

PATIENT

DRUGS (1)
  1. BACLOFEN [Suspect]
     Active Substance: BACLOFEN
     Indication: Product used for unknown indication

REACTIONS (3)
  - Lethargy [Unknown]
  - Fatigue [Unknown]
  - Somnolence [Unknown]
